FAERS Safety Report 12736042 (Version 1)
Quarter: 2016Q3

REPORT INFORMATION
  Report Type: Spontaneous
  Country: IT (occurrence: IT)
  Receive Date: 20160912
  Receipt Date: 20160912
  Transmission Date: 20161109
  Serious: Yes (Life-Threatening)
  Sender: FDA-Public Use
  Company Number: IT-PFIZER INC-2016421573

PATIENT
  Age: 73 Year
  Sex: Female

DRUGS (1)
  1. SOLU-MEDROL [Suspect]
     Active Substance: METHYLPREDNISOLONE SODIUM SUCCINATE
     Indication: CHRONIC LYMPHOCYTIC INFLAMMATION WITH PONTINE PERIVASCULAR ENHANCEMENT RESPONSIVE TO STEROIDS
     Dosage: 1 G, DAILY
     Route: 042
     Dates: start: 20160831, end: 20160831

REACTIONS (3)
  - Erythema [Unknown]
  - Condition aggravated [Unknown]
  - Hypotension [Unknown]

NARRATIVE: CASE EVENT DATE: 20160831
